FAERS Safety Report 15827255 (Version 1)
Quarter: 2019Q1

REPORT INFORMATION
  Report Type: Spontaneous
  Country: UA (occurrence: UA)
  Receive Date: 20190115
  Receipt Date: 20190115
  Transmission Date: 20190417
  Serious: Yes (Death, Life-Threatening, Other)
  Sender: FDA-Public Use
  Company Number: UA-BAUSCH-BL-2019-000995

PATIENT
  Age: 12 Day

DRUGS (9)
  1. AMPICILLIN [Suspect]
     Active Substance: AMPICILLIN
     Indication: SEPSIS NEONATAL
     Route: 065
  2. FENAMIN [Concomitant]
     Indication: ANALGESIC THERAPY
  3. METRONIDAZOLE. [Suspect]
     Active Substance: METRONIDAZOLE
     Indication: SEPSIS NEONATAL
     Route: 065
  4. PENTOXIFYLLINE. [Concomitant]
     Active Substance: PENTOXIFYLLINE
     Indication: COLONY STIMULATING FACTOR THERAPY
  5. PENTAGLOBIN [Concomitant]
     Active Substance: HUMAN IMMUNOGLOBULIN G
     Indication: IMMUNISATION
  6. ROMENEM [Suspect]
     Active Substance: MEROPENEM
     Indication: SEPSIS NEONATAL
     Route: 065
  7. OCTAPLEX [Concomitant]
     Active Substance: COAGULATION FACTOR IX HUMAN\COAGULATION FACTOR VII HUMAN\COAGULATION FACTOR X HUMAN\PROTEIN C\PROTEIN S HUMAN\PROTHROMBIN
     Indication: HAEMOSTASIS
  8. AMIKACIN SULFATE. [Suspect]
     Active Substance: AMIKACIN SULFATE
     Indication: SEPSIS NEONATAL
     Route: 065
  9. FLUCONAZOLE. [Suspect]
     Active Substance: FLUCONAZOLE
     Indication: SEPSIS NEONATAL
     Route: 065

REACTIONS (1)
  - Drug ineffective [Fatal]
